FAERS Safety Report 8432699-7 (Version None)
Quarter: 2012Q2

REPORT INFORMATION
  Report Type: 
  Country: None (occurrence: None)
  Receive Date: 20120607
  Receipt Date: 20120529
  Transmission Date: 20120825
  Serious: Yes (Other)
  Sender: FDA-Public Use
  Company Number: 2011MA002620

PATIENT
  Sex: Male

DRUGS (7)
  1. RANITIDINE [Concomitant]
  2. METOCLOPRAMIDE [Suspect]
     Indication: PRODUCT USED FOR UNKNOWN INDICATION
     Dosage: 0.3 ML;QID AC + HS;PO
     Route: 048
     Dates: start: 20080808, end: 20100301
  3. AMOXICILLIN [Concomitant]
  4. IBUPROFEN (ADVIL) [Concomitant]
  5. XOPENEX [Concomitant]
  6. MAALOX/LIDOCAINE [Concomitant]
  7. PREDNISOLONE [Concomitant]

REACTIONS (9)
  - INJURY [None]
  - ECONOMIC PROBLEM [None]
  - EMOTIONAL DISORDER [None]
  - DYSTONIA [None]
  - AKATHISIA [None]
  - TREMOR [None]
  - MOVEMENT DISORDER [None]
  - EXTRAPYRAMIDAL DISORDER [None]
  - TARDIVE DYSKINESIA [None]
